FAERS Safety Report 7557409-7 (Version None)
Quarter: 2011Q2

REPORT INFORMATION
  Report Type: 
  Country: None (occurrence: None)
  Receive Date: 20110620
  Receipt Date: 20110607
  Transmission Date: 20111010
  Serious: Yes (Hospitalization)
  Sender: FDA-Public Use
  Company Number: PHHY2011BR11818

PATIENT
  Sex: Female
  Weight: 65 kg

DRUGS (6)
  1. DIOVAN [Suspect]
     Indication: HYPERTENSION
     Dosage: 1 DF, BID
     Route: 048
  2. LIPOSIC [Concomitant]
     Indication: CATARACT
  3. METFORMIN HCL [Concomitant]
     Indication: DIABETES MELLITUS
     Dosage: 1 DF, BID (1 TABLET 2 TIMES DAILY AFTER THE LUNCH AND DINNER)
     Route: 048
  4. OLCADIL [Suspect]
     Indication: DEPRESSION
     Dosage: 2 MG, DAILY
     Route: 048
  5. HYDERGINE [Concomitant]
     Dosage: 1 DF, 01 CAPSULE AT NIGHT
     Route: 048
     Dates: start: 20100410
  6. LIPOSIC [Concomitant]
     Indication: GLAUCOMA
     Dosage: 1 DROP IN EACH EYE DAILY
     Route: 047

REACTIONS (2)
  - INSOMNIA [None]
  - TRANSIENT ISCHAEMIC ATTACK [None]
